FAERS Safety Report 6575739-2 (Version None)
Quarter: 2010Q1

REPORT INFORMATION
  Report Type: 
  Country: None (occurrence: None)
  Receive Date: 20100209
  Receipt Date: 20100203
  Transmission Date: 20100710
  Serious: Yes (Life-Threatening, Hospitalization, Other)
  Sender: FDA-Public Use
  Company Number: CH-JNJFOC-20100200223

PATIENT
  Sex: Male
  Weight: 68 kg

DRUGS (4)
  1. RISPERDAL CONSTA [Suspect]
     Indication: SCHIZOPHRENIA
     Route: 030
  2. LEPONEX [Suspect]
     Indication: SCHIZOPHRENIA
     Route: 048
  3. TEMESTA [Concomitant]
     Route: 048
  4. LANTUS [Concomitant]

REACTIONS (3)
  - DIABETES MELLITUS [None]
  - HOSPITALISATION [None]
  - SINUS TACHYCARDIA [None]
